FAERS Safety Report 12780586 (Version 2)
Quarter: 2016Q4

REPORT INFORMATION
  Report Type: Spontaneous
  Country: IT (occurrence: IT)
  Receive Date: 20160926
  Receipt Date: 20161003
  Transmission Date: 20170207
  Serious: Yes (Other)
  Sender: FDA-Public Use
  Company Number: IT-PFIZER INC-2016448327

PATIENT
  Age: 39 Year
  Sex: Female

DRUGS (1)
  1. ONDANSETRONE HIKMA [Suspect]
     Active Substance: ONDANSETRON
     Dosage: UNK
     Dates: end: 2016

REACTIONS (3)
  - Rash [Recovered/Resolved]
  - Angioedema [Recovered/Resolved]
  - Hypotension [Recovered/Resolved]

NARRATIVE: CASE EVENT DATE: 20160611
